FAERS Safety Report 6430035-9 (Version None)
Quarter: 2009Q4

REPORT INFORMATION
  Report Type: 
  Country: None (occurrence: None)
  Receive Date: 20091104
  Receipt Date: 20091104
  Transmission Date: 20100525
  Serious: Yes (Hospitalization)
  Sender: FDA-Public Use
  Company Number: None

PATIENT
  Sex: Female
  Weight: 79.83 kg

DRUGS (9)
  1. SORAFENIB 200MG BAYER HEALTHCARE PHARMACEUTICALS [Suspect]
     Indication: NEOPLASM
     Dosage: 400MG BID PO
     Route: 048
     Dates: start: 20091016, end: 20091029
  2. TYLENOL [Concomitant]
  3. DEXAMETHASONE [Concomitant]
  4. AMBIEN [Concomitant]
  5. ATIVAN [Concomitant]
  6. ZOFRAN [Concomitant]
  7. COMPAZINE [Concomitant]
  8. IBUPROFEN [Concomitant]
  9. EXCEDRIN (MIGRAINE) [Concomitant]

REACTIONS (4)
  - BREAST CELLULITIS [None]
  - CELLULITIS [None]
  - NAUSEA [None]
  - VOMITING [None]
